FAERS Safety Report 7199909-8 (Version None)
Quarter: 2010Q4

REPORT INFORMATION
  Report Type: 
  Country: None (occurrence: None)
  Receive Date: 20101228
  Receipt Date: 20101216
  Transmission Date: 20110411
  Serious: Yes (Other)
  Sender: FDA-Public Use
  Company Number: US-PFIZER INC-2010174105

PATIENT
  Sex: Female

DRUGS (3)
  1. PRISTIQ [Suspect]
     Indication: EATING DISORDER
     Dosage: UNK
     Dates: start: 20100101
  2. PRISTIQ [Suspect]
     Indication: ANXIETY
  3. PRISTIQ [Suspect]
     Indication: POST-TRAUMATIC STRESS DISORDER

REACTIONS (4)
  - ANXIETY [None]
  - FEAR [None]
  - PANIC ATTACK [None]
  - RESTLESSNESS [None]
